FAERS Safety Report 9690094 (Version 3)
Quarter: 2013Q4

REPORT INFORMATION
  Report Type: Spontaneous
  Country: CA (occurrence: CA)
  Receive Date: 20131115
  Receipt Date: 20131227
  Transmission Date: 20140711
  Serious: Yes (Hospitalization, Other)
  Sender: FDA-Public Use
  Company Number: CA-AMGEN-CANSP2013079753

PATIENT
  Age: 74 Year
  Sex: Male
  Weight: 99.77 kg

DRUGS (8)
  1. XGEVA [Suspect]
     Indication: METASTASES TO BONE
     Dosage: 120 MG, UNK
     Route: 058
     Dates: start: 20121026
  2. CALCITRIOL [Concomitant]
     Dosage: 1 MUG, BID
     Route: 048
  3. MAGNESIUM [Concomitant]
     Dosage: 250 MG, QD
     Route: 048
  4. CALCIUM [Concomitant]
     Dosage: 500 MG, QID
     Route: 048
  5. ACETYLSALICYLIC ACID [Concomitant]
     Dosage: 81, 3 TIMES/WK
  6. DEXAMETHASONE [Concomitant]
     Dosage: 4 MG TO 2 MG TO 0 (TAPER)
  7. ENZALUTAMIDE [Concomitant]
     Dosage: 160 MG, QD
     Route: 048
  8. TECTA [Concomitant]
     Dosage: 40 MG, QD
     Route: 048

REACTIONS (5)
  - Mental disorder [Recovered/Resolved]
  - Circumstance or information capable of leading to medication error [Unknown]
  - Metastases to central nervous system [Unknown]
  - Asthenia [Recovered/Resolved]
  - Hypocalcaemia [Not Recovered/Not Resolved]
